FAERS Safety Report 7880153-3 (Version None)
Quarter: 2011Q4

REPORT INFORMATION
  Report Type: 
  Country: None (occurrence: None)
  Receive Date: 20111101
  Receipt Date: 20111025
  Transmission Date: 20120403
  Serious: Yes (Hospitalization, Other)
  Sender: FDA-Public Use
  Company Number: US-PFIZER INC-2011235740

PATIENT
  Sex: Female
  Weight: 99.77 kg

DRUGS (10)
  1. DEPAKOTE [Suspect]
     Indication: ARRHYTHMIA
     Dosage: UNK
     Dates: start: 20110101, end: 20110101
  2. TRILEPTAL [Concomitant]
     Dosage: UNK
  3. LAMICTAL [Concomitant]
     Indication: MOOD ALTERED
     Dosage: UNK
  4. LAMICTAL [Concomitant]
     Indication: BIPOLAR DISORDER
  5. MAGNESIUM [Concomitant]
     Indication: CARDIAC DISORDER
     Dosage: UNK
  6. WELLBUTRIN [Concomitant]
     Indication: DEPRESSION
     Dosage: UNK
     Dates: start: 20110715
  7. HALCION [Concomitant]
     Indication: INSOMNIA
     Dosage: 0.5 MG, UNK
     Dates: start: 20080910
  8. GEODON [Suspect]
     Indication: BIPOLAR DISORDER
     Dosage: 40 MG IN MORNING, 160 MG IN EVENING
     Route: 048
     Dates: start: 20090527, end: 20110101
  9. GEODON [Suspect]
     Indication: PSYCHOTIC DISORDER
     Dosage: 160 MG, DAILY
     Route: 048
     Dates: start: 20111010
  10. SEROQUEL [Concomitant]
     Indication: BIPOLAR DISORDER
     Dosage: 50 MG, UNK
     Dates: start: 20110722

REACTIONS (3)
  - INSOMNIA [None]
  - SWELLING [None]
  - MANIA [None]
